APPROVED DRUG PRODUCT: HYDROCORTISONE SODIUM SUCCINATE
Active Ingredient: HYDROCORTISONE SODIUM SUCCINATE
Strength: EQ 100MG BASE/VIAL
Dosage Form/Route: INJECTABLE;INJECTION
Application: A219856 | Product #001 | TE Code: AP
Applicant: APOTEX INC
Approved: Feb 5, 2026 | RLD: No | RS: No | Type: RX